FAERS Safety Report 20648711 (Version 2)
Quarter: 2022Q2

REPORT INFORMATION
  Report Type: Report from Study
  Country: CA (occurrence: CA)
  Receive Date: 20220329
  Receipt Date: 20220503
  Transmission Date: 20220721
  Serious: Yes (Other)
  Sender: FDA-Public Use
  Company Number: CA-BAYER-2022A042421

PATIENT
  Sex: Female

DRUGS (2)
  1. EYLEA [Suspect]
     Active Substance: AFLIBERCEPT
     Indication: Age-related macular degeneration
     Dosage: UNK, SOLUTION FOR INJECTION
     Dates: start: 20220317, end: 20220317
  2. EYLEA [Suspect]
     Active Substance: AFLIBERCEPT
     Dosage: UNK,  SOLUTION FOR INJECTION, 40 MG/ML
     Dates: start: 20220414, end: 20220414

REACTIONS (2)
  - Hallucination [Unknown]
  - Nausea [Recovered/Resolved]

NARRATIVE: CASE EVENT DATE: 20220328
